FAERS Safety Report 12892475 (Version 2)
Quarter: 2016Q4

REPORT INFORMATION
  Report Type: Spontaneous
  Country: US (occurrence: US)
  Receive Date: 20161028
  Receipt Date: 20161102
  Transmission Date: 20170207
  Serious: No
  Sender: FDA-Public Use
  Company Number: US-PFIZER INC-2016499028

PATIENT
  Sex: Female

DRUGS (1)
  1. XELJANZ [Suspect]
     Active Substance: TOFACITINIB CITRATE
     Dosage: 5 MG, UNK

REACTIONS (8)
  - Back pain [Unknown]
  - Fatigue [Unknown]
  - Dyspnoea [Unknown]
  - Pyrexia [Unknown]
  - Dysuria [Unknown]
  - Chills [Unknown]
  - Anxiety [Unknown]
  - Depression [Unknown]
